FAERS Safety Report 10897559 (Version 2)
Quarter: 2015Q1

REPORT INFORMATION
  Report Type: Spontaneous
  Country: IT (occurrence: IT)
  Receive Date: 20150309
  Receipt Date: 20150309
  Transmission Date: 20150721
  Serious: Yes (Hospitalization)
  Sender: FDA-Public Use
  Company Number: IT-SA-2015SA026646

PATIENT
  Age: 62 Year
  Sex: Male

DRUGS (11)
  1. APIDRA SOLOSTAR [Suspect]
     Active Substance: INSULIN GLULISINE
     Indication: DIABETES MELLITUS
     Dosage: DOSE:64
     Route: 065
  2. NORMIX [Concomitant]
     Active Substance: RIFAXIMIN
  3. ANTRA [Concomitant]
     Active Substance: OMEPRAZOLE
  4. NOVOMIX [Suspect]
     Active Substance: INSULIN ASPART
     Dosage: DOSE: 24
     Route: 065
  5. SOLOSTAR [Concomitant]
     Active Substance: DEVICE
     Dates: start: 20150131, end: 20150228
  6. INDERAL [Concomitant]
     Active Substance: PROPRANOLOL HYDROCHLORIDE
     Dosage: STRENGTH: 40 MG, 30 TABLETS
  7. APIDRA SOLOSTAR [Suspect]
     Active Substance: INSULIN GLULISINE
     Indication: DIABETES MELLITUS
     Dosage: DOSE:80 UNIT(S)
     Route: 058
     Dates: start: 20150131, end: 20150228
  8. NOVOMIX [Suspect]
     Active Substance: INSULIN ASPART
     Dosage: DOSE:30 UNIT(S)
     Route: 058
     Dates: start: 20150131, end: 20150228
  9. PORTOLAC [Concomitant]
     Active Substance: LACTITOL
  10. FLEXPEN [Suspect]
     Active Substance: UNSPECIFIED INGREDIENT
     Dates: start: 20150131, end: 20150228
  11. SOLOSTAR [Concomitant]
     Active Substance: DEVICE

REACTIONS (4)
  - Syncope [Recovering/Resolving]
  - Hypoglycaemia [Recovering/Resolving]
  - Wound [Recovering/Resolving]
  - Drop attacks [Recovering/Resolving]

NARRATIVE: CASE EVENT DATE: 20150228
